FAERS Safety Report 21497773 (Version 3)
Quarter: 2023Q1

REPORT INFORMATION
  Report Type: Report from Study
  Country: US (occurrence: US)
  Receive Date: 20221024
  Receipt Date: 20230129
  Transmission Date: 20230417
  Serious: Yes (Hospitalization, Other)
  Sender: FDA-Public Use
  Company Number: US-BEIGENE-BGN-2022-010122

PATIENT

DRUGS (3)
  1. BRUKINSA [Suspect]
     Active Substance: ZANUBRUTINIB
     Indication: Waldenstrom^s macroglobulinaemia
     Dosage: 160 MILLIGRAM, QD
     Route: 048
     Dates: start: 20221005, end: 20221013
  2. BRUKINSA [Suspect]
     Active Substance: ZANUBRUTINIB
     Dosage: 160 MILLIGRAM, QD
     Route: 048
     Dates: start: 202210, end: 202211
  3. IMBRUVICA [Concomitant]
     Active Substance: IBRUTINIB

REACTIONS (12)
  - Faeces discoloured [Unknown]
  - Haematochezia [Unknown]
  - Haemoglobin decreased [Unknown]
  - Asthenia [Unknown]
  - Haemorrhage [Unknown]
  - Full blood count decreased [Recovering/Resolving]
  - Epistaxis [Unknown]
  - Eye haemorrhage [Unknown]
  - Blood immunoglobulin M increased [Recovering/Resolving]
  - Pain in extremity [Recovering/Resolving]
  - Nasopharyngitis [Unknown]
  - Underdose [Unknown]

NARRATIVE: CASE EVENT DATE: 20220901
